FAERS Safety Report 22654808 (Version 1)
Quarter: 2023Q2

REPORT INFORMATION
  Report Type: Spontaneous
  Country: GB (occurrence: GB)
  Receive Date: 20230629
  Receipt Date: 20230629
  Transmission Date: 20230722
  Serious: Yes (Disabling, Other)
  Sender: FDA-Public Use
  Company Number: GB-MHRA-MED-202306251337121440-GCDKN

PATIENT
  Age: 34 Year
  Sex: Female
  Weight: 81 kg

DRUGS (3)
  1. RISPERIDONE [Suspect]
     Active Substance: RISPERIDONE
     Indication: Delusion
     Dosage: 2 MG, ONCE A DAY
     Route: 065
     Dates: start: 20100501
  2. PALIPERIDONE [Suspect]
     Active Substance: PALIPERIDONE
     Indication: Chronic fatigue syndrome
     Dosage: UNK
     Route: 065
  3. ARIPIPRAZOLE [Concomitant]
     Active Substance: ARIPIPRAZOLE
     Indication: Adverse drug reaction
     Dosage: UNK
     Route: 065
     Dates: start: 20220101

REACTIONS (2)
  - Chronic fatigue syndrome [Not Recovered/Not Resolved]
  - Maternal exposure during pregnancy [Unknown]

NARRATIVE: CASE EVENT DATE: 20170901
